FAERS Safety Report 9268577 (Version 2)
Quarter: 2013Q4

REPORT INFORMATION
  Report Type: Report from Study
  Country: US (occurrence: US)
  Receive Date: 20130502
  Receipt Date: 20131003
  Transmission Date: 20140711
  Serious: No
  Sender: FDA-Public Use
  Company Number: US-ALEXION-A201300041

PATIENT
  Sex: Female
  Weight: 75.7 kg

DRUGS (11)
  1. SOLIRIS [Suspect]
     Indication: PAROXYSMAL NOCTURNAL HAEMOGLOBINURIA
     Dosage: UNK
     Route: 042
     Dates: start: 20130108
  2. BENADRYL [Suspect]
     Indication: PREMEDICATION
     Dosage: UNK
  3. LEVOXYL [Concomitant]
     Indication: HYPERTHYROIDISM
     Dosage: UNK
  4. CYTOMEL [Concomitant]
     Dosage: UNK
  5. VITAMIN D3 [Concomitant]
     Dosage: 5000 IU, UNK
  6. VITAMIN B12 [Concomitant]
     Dosage: UNK
  7. OMEGA 3 FISH OIL [Concomitant]
     Dosage: UNK
  8. COCONUT OIL [Concomitant]
     Indication: DYSPEPSIA
     Dosage: UNK
  9. COCONUT OIL [Concomitant]
     Indication: ONYCHOMYCOSIS
  10. PROBIOTIC [Concomitant]
     Dosage: UNK
  11. PREDNISONE [Concomitant]
     Dosage: UNK

REACTIONS (4)
  - Urticaria [Unknown]
  - Pain in extremity [Not Recovered/Not Resolved]
  - Headache [Unknown]
  - Arthralgia [Not Recovered/Not Resolved]
